FAERS Safety Report 5207311-0 (Version None)
Quarter: 2007Q1

REPORT INFORMATION
  Report Type: 
  Country: None (occurrence: None)
  Receive Date: 20070110
  Receipt Date: 20061226
  Transmission Date: 20070707
  Serious: Yes (Death)
  Sender: FDA-Public Use
  Company Number: 2006JP005483

PATIENT
  Age: 74 Year
  Sex: Male

DRUGS (3)
  1. FUNGUARD (MICAFUNGIN) INJECTION [Suspect]
     Indication: PERITONEAL INFECTION
     Dosage: 150 MG, IV DRIP
     Route: 041
     Dates: start: 20061225, end: 20061225
  2. MEROPEN (MEROPENEM) [Concomitant]
  3. VANCOMYCIN HYDROCHLORIDE [Concomitant]

REACTIONS (2)
  - MYOCARDIAL INFARCTION [None]
  - VENTRICULAR FIBRILLATION [None]
